FAERS Safety Report 6585190-7 (Version None)
Quarter: 2010Q1

REPORT INFORMATION
  Report Type: 
  Country: None (occurrence: None)
  Receive Date: 20100217
  Receipt Date: 20100209
  Transmission Date: 20100710
  Serious: Yes (Hospitalization, Other)
  Sender: FDA-Public Use
  Company Number: JP-ASTRAZENECA-2010SE06428

PATIENT
  Age: 41 Year
  Sex: Male

DRUGS (2)
  1. BLOPRESS [Suspect]
     Indication: ESSENTIAL HYPERTENSION
     Route: 048
     Dates: start: 20091224, end: 20100130
  2. NATRIX [Concomitant]
     Route: 048
     Dates: start: 20100116, end: 20100130

REACTIONS (2)
  - EAR DISCOMFORT [None]
  - LOSS OF CONSCIOUSNESS [None]
